FAERS Safety Report 20673753 (Version 10)
Quarter: 2025Q1

REPORT INFORMATION
  Report Type: Report from Study
  Country: US (occurrence: US)
  Receive Date: 20220405
  Receipt Date: 20250305
  Transmission Date: 20250409
  Serious: Yes (Hospitalization, Other)
  Sender: TAKEDA
  Company Number: US-TAKEDA-2022TUS021493

PATIENT
  Age: 69 Year
  Sex: Female
  Weight: 52 kg

DRUGS (31)
  1. HUMAN IMMUNOGLOBULIN G [Suspect]
     Active Substance: HUMAN IMMUNOGLOBULIN G
     Indication: Immunodeficiency common variable
     Dosage: 10 GRAM, 1/WEEK
     Dates: start: 20170818
  2. ACETAMINOPHEN [Concomitant]
     Active Substance: ACETAMINOPHEN
  3. DIPHENHYDRAMINE [Concomitant]
     Active Substance: DIPHENHYDRAMINE
  4. LIDOCAINE [Concomitant]
     Active Substance: LIDOCAINE
  5. EPINEPHRINE [Concomitant]
     Active Substance: EPINEPHRINE
  6. TRYPTOPHAN [Concomitant]
     Active Substance: TRYPTOPHAN
  7. SINGULAIR [Concomitant]
     Active Substance: MONTELUKAST SODIUM
  8. ATORVASTATIN CALCIUM [Concomitant]
     Active Substance: ATORVASTATIN CALCIUM
  9. ESOMEPRAZOLE [Concomitant]
     Active Substance: ESOMEPRAZOLE
  10. AMLODIPINE [Concomitant]
     Active Substance: AMLODIPINE BESYLATE
  11. LEVOTHYROXINE SODIUM [Concomitant]
     Active Substance: LEVOTHYROXINE SODIUM
  12. SUCRALFATE [Concomitant]
     Active Substance: SUCRALFATE
  13. TRINTELLIX [Concomitant]
     Active Substance: VORTIOXETINE HYDROBROMIDE
  14. AMOXICILLIN [Concomitant]
     Active Substance: AMOXICILLIN
  15. Telmisartan hydrochlorothiazide teva [Concomitant]
  16. IPRATROPIUM [Concomitant]
     Active Substance: IPRATROPIUM
  17. PROZAC [Concomitant]
     Active Substance: FLUOXETINE HYDROCHLORIDE
  18. ALBUTEROL [Concomitant]
     Active Substance: ALBUTEROL
  19. SYMBICORT [Concomitant]
     Active Substance: BUDESONIDE\FORMOTEROL FUMARATE DIHYDRATE
  20. MIRTAZAPINE [Concomitant]
     Active Substance: MIRTAZAPINE
  21. NEXIUM [Concomitant]
     Active Substance: ESOMEPRAZOLE MAGNESIUM
  22. ALBUTEROL\IPRATROPIUM [Concomitant]
     Active Substance: ALBUTEROL\IPRATROPIUM
  23. DIPHENHYDRAMINE HYDROCHLORIDE [Concomitant]
     Active Substance: DIPHENHYDRAMINE HYDROCHLORIDE
  24. SYNTHROID [Concomitant]
     Active Substance: LEVOTHYROXINE SODIUM
  25. CLONAZEPAM [Concomitant]
     Active Substance: CLONAZEPAM
  26. ASPIRIN [Concomitant]
     Active Substance: ASPIRIN
  27. CHLORHEXIDINE GLUCONATE [Concomitant]
     Active Substance: CHLORHEXIDINE GLUCONATE
  28. LEVALBUTEROL TARTRATE [Concomitant]
     Active Substance: LEVALBUTEROL TARTRATE
  29. ONDANSETRON [Concomitant]
     Active Substance: ONDANSETRON
  30. TRELEGY ELLIPTA [Concomitant]
     Active Substance: FLUTICASONE FUROATE\UMECLIDINIUM BROMIDE\VILANTEROL TRIFENATATE
  31. SODIUM CHLORIDE [Concomitant]
     Active Substance: SODIUM CHLORIDE

REACTIONS (15)
  - Blindness transient [Unknown]
  - Hiatus hernia [Unknown]
  - COVID-19 [Unknown]
  - Nasopharyngitis [Unknown]
  - Seasonal allergy [Unknown]
  - Lung disorder [Unknown]
  - Eye disorder [Unknown]
  - Bacterial infection [Unknown]
  - Glomerular filtration rate decreased [Unknown]
  - Bronchitis [Unknown]
  - Device breakage [Unknown]
  - Product dose omission issue [Unknown]
  - Visual impairment [Unknown]
  - Blood creatinine increased [Unknown]
  - Pain [Unknown]

NARRATIVE: CASE EVENT DATE: 20220109
